FAERS Safety Report 9371938 (Version 1)
Quarter: 2013Q2

REPORT INFORMATION
  Report Type: Spontaneous
  Country: US (occurrence: US)
  Receive Date: 20130627
  Receipt Date: 20130627
  Transmission Date: 20140414
  Serious: No
  Sender: FDA-Public Use
  Company Number: US-BAYER-2013-078157

PATIENT
  Age: 52 Year
  Sex: Female
  Weight: 56 kg

DRUGS (4)
  1. ALEVE CAPLET [Suspect]
     Indication: HEADACHE
     Route: 048
  2. SEROQUEL [Concomitant]
  3. VITAMINS [Concomitant]
  4. PROZAC [Concomitant]

REACTIONS (4)
  - Ear swelling [Not Recovered/Not Resolved]
  - Ear pruritus [Not Recovered/Not Resolved]
  - Ear disorder [Not Recovered/Not Resolved]
  - Pruritus [Not Recovered/Not Resolved]
